FAERS Safety Report 13966823 (Version 1)
Quarter: 2017Q3

REPORT INFORMATION
  Report Type: Spontaneous
  Country: US (occurrence: US)
  Receive Date: 20170914
  Receipt Date: 20170914
  Transmission Date: 20171128
  Serious: Yes (Disabling, Other)
  Sender: FDA-Public Use
  Company Number: None

PATIENT
  Age: 27 Year
  Sex: Female
  Weight: 144 kg

DRUGS (1)
  1. SKYLA [Suspect]
     Active Substance: LEVONORGESTREL
     Indication: HORMONE LEVEL ABNORMAL
     Dosage: ?          QUANTITY:1 IUD;OTHER FREQUENCY:CONTINUOUS;?
     Route: 067
     Dates: start: 20150917, end: 20161010

REACTIONS (2)
  - Idiopathic intracranial hypertension [None]
  - Papilloedema [None]

NARRATIVE: CASE EVENT DATE: 20170421
